FAERS Safety Report 16944960 (Version 1)
Quarter: 2019Q4

REPORT INFORMATION
  Report Type: Spontaneous
  Country: CA (occurrence: CA)
  Receive Date: 20191022
  Receipt Date: 20191022
  Transmission Date: 20200122
  Serious: Yes (Death)
  Sender: FDA-Public Use
  Company Number: CA-PFIZER INC-2019453234

PATIENT
  Age: 60 Year
  Sex: Female

DRUGS (7)
  1. GABAPENTIN. [Concomitant]
     Active Substance: GABAPENTIN
     Dosage: UNK
  2. TOPIRAMATE. [Concomitant]
     Active Substance: TOPIRAMATE
     Dosage: UNK
  3. DIAZEPAM. [Suspect]
     Active Substance: DIAZEPAM
     Dosage: UNK
  4. CHLORPROMAZINE. [Concomitant]
     Active Substance: CHLORPROMAZINE
     Dosage: UNK
  5. GLICLAZIDE [Concomitant]
     Active Substance: GLICLAZIDE
     Dosage: UNK
  6. DOXEPIN HYDROCHLORIDE. [Suspect]
     Active Substance: DOXEPIN HYDROCHLORIDE
     Dosage: UNK
  7. BUPROPION. [Suspect]
     Active Substance: BUPROPION
     Dosage: UNK

REACTIONS (2)
  - Choking [Fatal]
  - Drug level above therapeutic [Fatal]
